FAERS Safety Report 9924859 (Version 1)
Quarter: 2014Q1

REPORT INFORMATION
  Report Type: Spontaneous
  Country: US (occurrence: US)
  Receive Date: 20140226
  Receipt Date: 20140226
  Transmission Date: 20141002
  Serious: No
  Sender: FDA-Public Use
  Company Number: US-BAYER-2014-028207

PATIENT
  Age: 82 Year
  Sex: Female
  Weight: 69.39 kg

DRUGS (3)
  1. ALEVE CAPLET [Suspect]
     Indication: ARTHRITIS
     Dosage: 1 DF, QD
     Route: 048
     Dates: start: 20140128, end: 20140220
  2. CRESTOR [Concomitant]
     Dosage: UNK
  3. SYNTHROID [Concomitant]

REACTIONS (4)
  - Hair colour changes [Not Recovered/Not Resolved]
  - Chromaturia [Not Recovered/Not Resolved]
  - Faeces discoloured [None]
  - Incorrect drug administration duration [None]
